FAERS Safety Report 20683213 (Version 1)
Quarter: 2022Q2

REPORT INFORMATION
  Report Type: Other
  Country: KR (occurrence: None)
  Receive Date: 20220407
  Receipt Date: 20220407
  Transmission Date: 20220720
  Serious: Yes (Hospitalization, Other)
  Sender: FDA-Public Use
  Company Number: KR-Umedica-000223

PATIENT
  Age: 68 Year
  Sex: Female

DRUGS (1)
  1. OLMESARTAN [Suspect]
     Active Substance: OLMESARTAN
     Indication: Hypertension

REACTIONS (3)
  - Sprue-like enteropathy [Recovered/Resolved]
  - Acute kidney injury [Recovered/Resolved]
  - Duodenal ulcer [Unknown]
